FAERS Safety Report 13930147 (Version 1)
Quarter: 2017Q3

REPORT INFORMATION
  Report Type: Spontaneous
  Country: GB (occurrence: GB)
  Receive Date: 20170901
  Receipt Date: 20170901
  Transmission Date: 20171127
  Serious: Yes (Death, Hospitalization)
  Sender: FDA-Public Use
  Company Number: GB-TEVA-800945ACC

PATIENT
  Age: 75 Year
  Sex: Female

DRUGS (8)
  1. SODIUM PICOSULPHATE [Concomitant]
     Active Substance: SODIUM PICOSULFATE
  2. COCODAMOL [Concomitant]
     Active Substance: ACETAMINOPHEN\CODEINE PHOSPHATE
  3. OMEPRAZOLE. [Concomitant]
     Active Substance: OMEPRAZOLE
  4. CITALOPRAM [Concomitant]
     Active Substance: CITALOPRAM HYDROBROMIDE
  5. DIAZEPAM. [Concomitant]
     Active Substance: DIAZEPAM
  6. WARFARIN [Suspect]
     Active Substance: WARFARIN
     Indication: DEEP VEIN THROMBOSIS
     Route: 048
     Dates: start: 2010
  7. RAMIPRIL. [Concomitant]
     Active Substance: RAMIPRIL
  8. SIMVASTATIN. [Concomitant]
     Active Substance: SIMVASTATIN

REACTIONS (4)
  - Depressed level of consciousness [Not Recovered/Not Resolved]
  - Haemorrhage intracranial [Fatal]
  - Hemiparesis [Not Recovered/Not Resolved]
  - Circulatory collapse [Not Recovered/Not Resolved]
